FAERS Safety Report 9198827 (Version 1)
Quarter: 2013Q1

REPORT INFORMATION
  Report Type: Spontaneous
  Country: US (occurrence: None)
  Receive Date: 20130327
  Receipt Date: 20130327
  Transmission Date: 20140127
  Serious: No
  Sender: FDA-Public Use
  Company Number: None

PATIENT
  Age: 33 Year
  Sex: Female

DRUGS (1)
  1. DROSPIRENONE-ETHINYL ESTRADIOL [Suspect]
     Dosage: 3.0-.02 PER TAB TAKE 1 TAB DAILY

REACTIONS (4)
  - Drug intolerance [None]
  - Depressed mood [None]
  - Anger [None]
  - Mood altered [None]
